FAERS Safety Report 5637233-2 (Version None)
Quarter: 2008Q1

REPORT INFORMATION
  Report Type: 
  Country: None (occurrence: None)
  Receive Date: 20080225
  Receipt Date: 20070621
  Transmission Date: 20080703
  Serious: No
  Sender: FDA-Public Use
  Company Number: US-BRISTOL-MYERS SQUIBB COMPANY-13718549

PATIENT
  Age: 54 Year
  Sex: Male
  Weight: 89 kg

DRUGS (6)
  1. KENALOG [Suspect]
     Indication: SCIATICA
     Route: 008
     Dates: start: 20070228, end: 20070228
  2. KENALOG [Suspect]
     Indication: INTERVERTEBRAL DISC PROTRUSION
     Route: 008
     Dates: start: 20070228, end: 20070228
  3. OMNIPAQUE 300 [Concomitant]
     Indication: SCIATICA
     Route: 008
  4. OMNIPAQUE 300 [Concomitant]
     Indication: INTERVERTEBRAL DISC PROTRUSION
     Route: 008
  5. ASPIRIN [Concomitant]
  6. LIDOCAINE [Concomitant]

REACTIONS (5)
  - BACK PAIN [None]
  - CHEST PAIN [None]
  - PAIN [None]
  - PAIN IN EXTREMITY [None]
  - VISION BLURRED [None]
